FAERS Safety Report 13313188 (Version 2)
Quarter: 2017Q1

REPORT INFORMATION
  Report Type: Spontaneous
  Country: CZ (occurrence: CZ)
  Receive Date: 20170309
  Receipt Date: 20170320
  Transmission Date: 20170428
  Serious: Yes (Hospitalization, Other)
  Sender: FDA-Public Use
  Company Number: CZ-GILEAD-2017-0259882

PATIENT
  Age: 67 Year
  Sex: Male
  Weight: 128 kg

DRUGS (3)
  1. BISEPTOL [Concomitant]
     Active Substance: SULFAMETHOXAZOLE\TRIMETHOPRIM
     Dosage: UNK
     Route: 048
     Dates: start: 20160209
  2. VALACICLOVIR [Concomitant]
     Active Substance: VALACYCLOVIR HYDROCHLORIDE
     Dosage: UNK
     Route: 048
     Dates: start: 20160209
  3. ZYDELIG [Suspect]
     Active Substance: IDELALISIB
     Indication: CHRONIC LYMPHOCYTIC LEUKAEMIA
     Dosage: UNK
     Route: 065
     Dates: start: 20160209, end: 20170201

REACTIONS (4)
  - Metastases to liver [Not Recovered/Not Resolved]
  - Pyrexia [Unknown]
  - Lung disorder [Recovering/Resolving]
  - Gastrointestinal wall thickening [Not Recovered/Not Resolved]

NARRATIVE: CASE EVENT DATE: 20170115
